FAERS Safety Report 9246515 (Version 2)
Quarter: 2013Q2

REPORT INFORMATION
  Report Type: Spontaneous
  Country: US (occurrence: US)
  Receive Date: 20130422
  Receipt Date: 20130422
  Transmission Date: 20140414
  Serious: No
  Sender: FDA-Public Use
  Company Number: US-ABBOTT-12P-163-0933866-00

PATIENT
  Age: 5 Year
  Sex: Female
  Weight: 18.3 kg

DRUGS (1)
  1. LUPRON DEPOT-PED 11.25 MG (3 MONTH) [Suspect]
     Indication: PRECOCIOUS PUBERTY
     Dates: start: 20120113

REACTIONS (2)
  - Abscess sterile [Recovered/Resolved]
  - Injection site swelling [Recovered/Resolved]
